FAERS Safety Report 25701817 (Version 1)
Quarter: 2025Q3

REPORT INFORMATION
  Report Type: Spontaneous
  Country: CA (occurrence: CA)
  Receive Date: 20250819
  Receipt Date: 20250819
  Transmission Date: 20251021
  Serious: Yes (Death, Other)
  Sender: BRISTOL-MYERS SQUIBB COMPANY
  Company Number: CA-BRISTOL-MYERS SQUIBB COMPANY-2025-113739

PATIENT
  Age: 89 Year
  Sex: Female

DRUGS (1)
  1. ELIQUIS [Suspect]
     Active Substance: APIXABAN
     Indication: Atrial fibrillation
     Route: 048

REACTIONS (6)
  - Accidental death [Fatal]
  - Drug monitoring procedure not performed [Unknown]
  - Product dispensing error [Unknown]
  - Renal artery thrombosis [Unknown]
  - Renal infarct [Unknown]
  - Transcription medication error [Unknown]
